FAERS Safety Report 24252492 (Version 1)
Quarter: 2024Q3

REPORT INFORMATION
  Report Type: Spontaneous
  Country: GB (occurrence: GB)
  Receive Date: 20240827
  Receipt Date: 20240827
  Transmission Date: 20241017
  Serious: Yes (Death, Other)
  Sender: AUROBINDO
  Company Number: GB-MHRA-MIDB-1fd64265-e596-424d-91ef-97bb82ad4745

PATIENT
  Age: 80 Year

DRUGS (9)
  1. SERTRALINE [Suspect]
     Active Substance: SERTRALINE HYDROCHLORIDE
     Indication: Product used for unknown indication
     Dosage: 50 MILLIGRAM, ONCE A DAY (50 MG TABLETS ONE TO BE TAKEN EACH DAY IN THE MORNING)
     Route: 065
  2. EDOXABAN [Suspect]
     Active Substance: EDOXABAN
     Indication: Product used for unknown indication
     Dosage: 60 MILLIGRAM, ONCE A DAY (60 MG TABLETS ONE TO BE TAKEN EACH DAY IN THE MORNING)
     Route: 065
  3. ACETAMINOPHEN [Concomitant]
     Active Substance: ACETAMINOPHEN
     Indication: Product used for unknown indication
     Dosage: 1 GRAM (500 MG TABLETS TWO TO BE TAKEN EVERY 4 - 6 HOURS UP TO FOUR TIMES A DAY - PRESCRIBED 1G QDS
     Route: 065
  4. GLICLAZIDE [Concomitant]
     Active Substance: GLICLAZIDE
     Indication: Product used for unknown indication
     Dosage: 40 MILLIGRAM, ONCE A DAY (40 MG TABLETS ONE TO BE TAKEN DAILY WITH BREAKFAST-AKL / NBM)
     Route: 065
  5. ATORVASTATIN [Concomitant]
     Active Substance: ATORVASTATIN
     Indication: Product used for unknown indication
     Dosage: 80 MILLIGRAM, ONCE A DAY (80 MG TABLETS TAKE ONE DAILY - PRESCRIBED ON ON TTO DEC 2023)
     Route: 065
  6. METFORMIN [Concomitant]
     Active Substance: METFORMIN HYDROCHLORIDE
     Indication: Product used for unknown indication
     Dosage: 1 GRAM, TWO TIMES A DAY (1 G MODIFIED - RELEASE TABLETS ONE TO BE TAKEN TWICE A DAY MORNING ANDTEATI
     Route: 065
  7. NICORANDIL [Concomitant]
     Active Substance: NICORANDIL
     Indication: Product used for unknown indication
     Dosage: 20 MILLIGRAM, TWO TIMES A DAY
     Route: 065
  8. BISOPROLOL [Concomitant]
     Active Substance: BISOPROLOL\BISOPROLOL FUMARATE
     Indication: Product used for unknown indication
     Dosage: 1.25 MILLIGRAM, ONCE A DAY (1.25 MG TABLETS 1 TABLET ONCE A DAY - PRESCRIBED OM ON TTO DEC202)
     Route: 065
  9. ALLOPURINOL [Concomitant]
     Active Substance: ALLOPURINOL
     Indication: Product used for unknown indication
     Dosage: 100 MILLIGRAM, ONCE A DAY (100 MG TABLETS ONE TO BE TAKEN EACH DAY)
     Route: 065

REACTIONS (1)
  - Upper gastrointestinal haemorrhage [Fatal]
